FAERS Safety Report 7433966-6 (Version None)
Quarter: 2011Q2

REPORT INFORMATION
  Report Type: 
  Country: None (occurrence: None)
  Receive Date: 20110420
  Receipt Date: 20110420
  Transmission Date: 20111010
  Serious: No
  Sender: FDA-Public Use
  Company Number: None

PATIENT
  Age: 17 Year
  Sex: Female
  Weight: 70.3075 kg

DRUGS (2)
  1. LEVAQUIN [Suspect]
     Indication: SINUSITIS
     Dosage: 500 BID PO
     Route: 048
     Dates: start: 20110215, end: 20110224
  2. LEVAQUIN [Suspect]
     Indication: SINUSITIS
     Dosage: 500 BID PO
     Route: 048
     Dates: start: 20101111, end: 20101120

REACTIONS (2)
  - AMENORRHOEA [None]
  - TREMOR [None]
